FAERS Safety Report 7873451-0 (Version None)
Quarter: 2011Q4

REPORT INFORMATION
  Report Type: 
  Country: None (occurrence: None)
  Receive Date: 20111030
  Receipt Date: 20110504
  Transmission Date: 20120403
  Serious: No
  Sender: FDA-Public Use
  Company Number: US-AMGEN-USASP2011023180

PATIENT
  Age: 44 Year
  Sex: Female
  Weight: 72.109 kg

DRUGS (11)
  1. PLAQUENIL [Concomitant]
     Dosage: 200 MG, UNK
     Route: 048
  2. DIGEST                             /01159001/ [Concomitant]
     Route: 048
  3. ENBREL [Suspect]
  4. CAL-MAG                            /01226301/ [Concomitant]
     Dosage: UNK
     Route: 048
  5. FOLIC ACID [Concomitant]
     Dosage: 1 MG, UNK
     Route: 048
  6. ENBREL [Suspect]
     Indication: PRODUCT USED FOR UNKNOWN INDICATION
     Dosage: 50 MG, QWK
     Route: 058
  7. ARAVA [Concomitant]
     Dosage: 10 MG, UNK
     Route: 048
  8. METHOTREXATE [Concomitant]
     Dosage: 25 MG, UNK
  9. THYROID TAB [Concomitant]
     Dosage: 60 MG, UNK
     Route: 048
  10. VITAMIN D [Concomitant]
     Dosage: 1000 IU, UNK
     Route: 048
  11. PROBIOTIC FEMINA [Concomitant]
     Route: 048

REACTIONS (10)
  - INJECTION SITE ERYTHEMA [None]
  - RHINORRHOEA [None]
  - DECREASED APPETITE [None]
  - INJECTION SITE INDURATION [None]
  - INFLUENZA [None]
  - NASOPHARYNGITIS [None]
  - UPPER RESPIRATORY TRACT CONGESTION [None]
  - OROPHARYNGEAL PAIN [None]
  - HEADACHE [None]
  - INJECTION SITE WARMTH [None]
